FAERS Safety Report 9786705 (Version 3)
Quarter: 2014Q1

REPORT INFORMATION
  Report Type: Spontaneous
  Country: JP (occurrence: JP)
  Receive Date: 20131227
  Receipt Date: 20140217
  Transmission Date: 20141002
  Serious: Yes (Other)
  Sender: FDA-Public Use
  Company Number: JP-TAKEDA-2013TUS003428

PATIENT
  Sex: 0

DRUGS (1)
  1. FEBURIC [Suspect]
     Indication: HYPERURICAEMIA
     Dosage: UNK
     Route: 048
     Dates: start: 201212, end: 20130731

REACTIONS (1)
  - Interstitial lung disease [Recovered/Resolved]
